FAERS Safety Report 6077116-X (Version None)
Quarter: 2009Q1

REPORT INFORMATION
  Report Type: 
  Country: None (occurrence: None)
  Receive Date: 20090213
  Receipt Date: 20090209
  Transmission Date: 20090719
  Serious: Yes (Hospitalization)
  Sender: FDA-Public Use
  Company Number: PHHO2008FR13157

PATIENT
  Sex: Male

DRUGS (6)
  1. BLINDED NO TREATMENT RECEIVED NOMED [Suspect]
     Indication: CARCINOID TUMOUR
     Dosage: DOUBLE BLIND
     Route: 048
     Dates: start: 20080207, end: 20081112
  2. BLINDED PLACEBO COMP-PLA+ [Suspect]
     Indication: CARCINOID TUMOUR
     Dosage: DOUBLE BLIND
     Route: 048
     Dates: start: 20080207, end: 20081112
  3. BLINDED RAD 666 RAD+TAB [Suspect]
     Indication: CARCINOID TUMOUR
     Dosage: DOUBLE BLIND
     Route: 048
     Dates: start: 20080207, end: 20081112
  4. SANDOSTATIN LAR [Suspect]
     Indication: CARCINOID TUMOUR
  5. TROSPIUM CHLORIDE [Concomitant]
  6. ARESTAL [Concomitant]

REACTIONS (6)
  - ABDOMINAL PAIN [None]
  - CANDIDIASIS [None]
  - COLITIS [None]
  - DIARRHOEA [None]
  - SEPSIS [None]
  - STAPHYLOCOCCAL INFECTION [None]
